FAERS Safety Report 6391369-X (Version None)
Quarter: 2009Q4

REPORT INFORMATION
  Report Type: 
  Country: None (occurrence: None)
  Receive Date: 20091005
  Receipt Date: 20090918
  Transmission Date: 20100525
  Serious: Yes (Death)
  Sender: FDA-Public Use
  Company Number: 2009002861

PATIENT

DRUGS (2)
  1. ERLOTINIB HYDROCHLORIDE [Suspect]
     Indication: NON-SMALL CELL LUNG CANCER
     Dosage: (150 MG), ORAL
     Route: 048
  2. VELCADE [Suspect]
     Dosage: (1.6 MG/M2), INTRAVENOUS
     Route: 042

REACTIONS (8)
  - DECREASED APPETITE [None]
  - DERMATITIS ACNEIFORM [None]
  - DIARRHOEA [None]
  - HYPOKALAEMIA [None]
  - NAUSEA [None]
  - NEUROPATHY PERIPHERAL [None]
  - PNEUMONIA [None]
  - VOMITING [None]
